FAERS Safety Report 20298170 (Version 5)
Quarter: 2023Q1

REPORT INFORMATION
  Report Type: Report from Study
  Country: CA (occurrence: CA)
  Receive Date: 20220105
  Receipt Date: 20230209
  Transmission Date: 20230417
  Serious: Yes (Hospitalization, Other)
  Sender: FDA-Public Use
  Company Number: CA-JNJFOC-20220100237

PATIENT
  Age: 48 Year
  Sex: Male
  Weight: 77.4 kg

DRUGS (2)
  1. REMICADE [Suspect]
     Active Substance: INFLIXIMAB
     Indication: Crohn^s disease
     Route: 042
     Dates: start: 20200914
  2. REMICADE [Suspect]
     Active Substance: INFLIXIMAB
     Route: 042

REACTIONS (5)
  - Haematological infection [Unknown]
  - Stoma creation [Unknown]
  - Surgery [Unknown]
  - Abdominal pain upper [Unknown]
  - Dysstasia [Unknown]

NARRATIVE: CASE EVENT DATE: 20211201
